FAERS Safety Report 14957657 (Version 1)
Quarter: 2018Q2

REPORT INFORMATION
  Report Type: Spontaneous
  Country: US (occurrence: US)
  Receive Date: 20180531
  Receipt Date: 20180531
  Transmission Date: 20180711
  Serious: No
  Sender: FDA-Public Use
  Company Number: US-ARBOR PHARMACEUTICALS, LLC-US-2017ARB000833

PATIENT

DRUGS (7)
  1. DEXAMETHASONE. [Concomitant]
     Active Substance: DEXAMETHASONE
     Indication: PRODUCT USED FOR UNKNOWN INDICATION
     Dosage: UNK
  2. HORIZANT [Suspect]
     Active Substance: GABAPENTIN ENACARBIL
     Indication: ARTHRALGIA
  3. HORIZANT [Suspect]
     Active Substance: GABAPENTIN ENACARBIL
     Indication: PAIN IN EXTREMITY
  4. PREDNISONE. [Concomitant]
     Active Substance: PREDNISONE
     Indication: PRODUCT USED FOR UNKNOWN INDICATION
  5. HORIZANT [Suspect]
     Active Substance: GABAPENTIN ENACARBIL
     Indication: POEMS SYNDROME
     Dosage: 600 MG, UNK
     Route: 048
     Dates: start: 201702, end: 2017
  6. HORIZANT [Suspect]
     Active Substance: GABAPENTIN ENACARBIL
     Indication: POLYNEUROPATHY
     Dosage: 1200 MG, AT THE SAME TIME AT DINNERTIME FOR 2 DAYS NOW
     Route: 048
     Dates: start: 2017, end: 2017
  7. ALKERAN [Concomitant]
     Active Substance: MELPHALAN
     Indication: PRODUCT USED FOR UNKNOWN INDICATION
     Dosage: 4 DAYS, UNK

REACTIONS (4)
  - Drug ineffective [Unknown]
  - Product use in unapproved indication [Unknown]
  - Inappropriate schedule of drug administration [Unknown]
  - Depression [Unknown]
